FAERS Safety Report 7229900-4 (Version None)
Quarter: 2011Q1

REPORT INFORMATION
  Report Type: 
  Country: None (occurrence: None)
  Receive Date: 20110117
  Receipt Date: 20110111
  Transmission Date: 20110831
  Serious: Yes (Other)
  Sender: FDA-Public Use
  Company Number: US-BAXTER-2011BH000929

PATIENT
  Age: 45 Year
  Sex: Female

DRUGS (1)
  1. CEFOXITIN 1 OR 2 GR VIALS [Suspect]
     Indication: INFECTION PROPHYLAXIS
     Route: 042

REACTIONS (4)
  - JAUNDICE [None]
  - HAEMOLYTIC ANAEMIA [None]
  - CHROMATURIA [None]
  - PYREXIA [None]
